FAERS Safety Report 9457854 (Version 2)
Quarter: 2013Q4

REPORT INFORMATION
  Report Type: Spontaneous
  Country: US (occurrence: None)
  Receive Date: 20130809
  Receipt Date: 20131010
  Transmission Date: 20140711
  Serious: Yes (Hospitalization)
  Sender: FDA-Public Use
  Company Number: JPI-P-034153

PATIENT
  Age: 38 Year
  Sex: Female
  Weight: 81.65 kg

DRUGS (8)
  1. XYREM [Suspect]
     Indication: NARCOLEPSY
     Dosage: 4.5 GM (2.25 GM, 2 IN 1 D),ORAL
     Route: 048
     Dates: start: 20060906
  2. XYREM [Suspect]
     Indication: SOMNOLENCE
     Dosage: 4.5 GM (2.25 GM, 2 IN 1 D),ORAL
     Route: 048
     Dates: start: 20060906
  3. AMPHETAMINE DEXTROAPHETAMINE MIXED SALTS [Concomitant]
  4. ZOLPIDEM TARTRATE [Concomitant]
  5. MULTIVITAMIN [Concomitant]
  6. ADDERALL (AMFETAMINE ASPARTATE, AMFETAMINE SULFATE, DEXAMFETAMINE SACCHARATE, DEXAMFETAMINE SULFATE) [Concomitant]
  7. AMBIEN (ZOLPIDEM TARTRATE) [Concomitant]
  8. MULTIVITAMIN (ASCORBIC ACID, CALCIUM PANTOTHENATE, ERGOCALCIFEROL, NICOTINAMIDE, PYRIDOXINE HYDROCHLORIDE, RETINOL, RIBOFLAVIN, THIAMINE HYDROCHLORIDE) [Concomitant]

REACTIONS (5)
  - Surgery [None]
  - Drug interaction [None]
  - Lumbar spinal stenosis [None]
  - Spinal fusion surgery [None]
  - Back injury [None]
